FAERS Safety Report 21332694 (Version 3)
Quarter: 2022Q3

REPORT INFORMATION
  Report Type: Spontaneous
  Country: US (occurrence: US)
  Receive Date: 20220914
  Receipt Date: 20220927
  Transmission Date: 20221027
  Serious: Yes (Life-Threatening, Hospitalization, Other)
  Sender: FDA-Public Use
  Company Number: US-UNITED THERAPEUTICS-UNT-2022-017459

PATIENT
  Sex: Male

DRUGS (4)
  1. REMODULIN [Suspect]
     Active Substance: TREPROSTINIL
     Indication: Pulmonary arterial hypertension
     Dosage: UNK, CONTINUING
     Route: 058
     Dates: start: 202205
  2. REMODULIN [Suspect]
     Active Substance: TREPROSTINIL
     Dosage: 0.0233 ?G/KG, CONTINUING [PUMP RATE 0.022ML/HR]
     Route: 058
     Dates: start: 2022, end: 2022
  3. REMODULIN [Suspect]
     Active Substance: TREPROSTINIL
     Dosage: 0.02340 ?G/KG, CONTINUING
     Route: 058
     Dates: start: 2022, end: 2022
  4. REMODULIN [Suspect]
     Active Substance: TREPROSTINIL
     Dosage: 0.02120 ?G/KG, CONTINUING (PUMP RATE OF 0.02 ML/HR)
     Route: 058
     Dates: start: 2022

REACTIONS (23)
  - Hypotension [Recovered/Resolved]
  - Accidental overdose [Recovered/Resolved]
  - Infusion site haemorrhage [Unknown]
  - Diarrhoea [Unknown]
  - Vomiting [Unknown]
  - Loss of consciousness [Unknown]
  - Dizziness [Recovered/Resolved]
  - Device loosening [Recovered/Resolved]
  - Intentional medical device removal by patient [Recovered/Resolved]
  - Device infusion issue [Unknown]
  - Blood pressure systolic increased [Unknown]
  - Infusion site erythema [Recovered/Resolved]
  - Infusion site extravasation [Unknown]
  - Infusion site discomfort [Unknown]
  - Infusion site pain [Recovering/Resolving]
  - Exposure via skin contact [Unknown]
  - Skin burning sensation [Unknown]
  - Pain [Unknown]
  - Erythema [Unknown]
  - Infusion site swelling [Unknown]
  - Infusion site reaction [Unknown]
  - Fatigue [Unknown]
  - Decreased appetite [Unknown]

NARRATIVE: CASE EVENT DATE: 20220101
